FAERS Safety Report 13951147 (Version 1)
Quarter: 2017Q3

REPORT INFORMATION
  Report Type: Spontaneous
  Country: US (occurrence: US)
  Receive Date: 20170908
  Receipt Date: 20170908
  Transmission Date: 20171128
  Serious: No
  Sender: FDA-Public Use
  Company Number: US-PFIZER INC-2017388630

PATIENT
  Age: 68 Year
  Sex: Female

DRUGS (1)
  1. VANCOMYCIN HCL [Suspect]
     Active Substance: VANCOMYCIN HYDROCHLORIDE
     Dosage: UNK

REACTIONS (5)
  - Pruritus [Unknown]
  - Drug hypersensitivity [Unknown]
  - Tremor [Unknown]
  - Serum sickness [Unknown]
  - Petechiae [Unknown]
